FAERS Safety Report 6574300-3 (Version None)
Quarter: 2010Q1

REPORT INFORMATION
  Report Type: 
  Country: None (occurrence: None)
  Receive Date: 20100201
  Receipt Date: 20100119
  Transmission Date: 20100710
  Serious: Yes (Hospitalization)
  Sender: FDA-Public Use
  Company Number: 1000011495

PATIENT
  Age: 78 Year
  Sex: Female

DRUGS (8)
  1. MEMANTINE HCL [Suspect]
     Dosage: (10 MG)
     Dates: end: 20090927
  2. EFFEXOR [Suspect]
     Dosage: (75 MG),ORAL
     Route: 048
     Dates: end: 20091002
  3. KARDEGIC [Concomitant]
  4. ZANIDIP [Concomitant]
  5. FUROSEMIDE [Concomitant]
  6. SELOKEN [Concomitant]
  7. ALLOPURINOL [Concomitant]
  8. TRANSIPEG [Concomitant]

REACTIONS (8)
  - CARDIAC FAILURE [None]
  - CONFUSIONAL STATE [None]
  - CONVULSION [None]
  - DYSKINESIA [None]
  - EYE MOVEMENT DISORDER [None]
  - EYE ROLLING [None]
  - MALAISE [None]
  - URINARY TRACT INFECTION [None]
